FAERS Safety Report 6066047-7 (Version None)
Quarter: 2009Q1

REPORT INFORMATION
  Report Type: 
  Country: None (occurrence: None)
  Receive Date: 20090205
  Receipt Date: 20090129
  Transmission Date: 20090719
  Serious: Yes (Death, Hospitalization)
  Sender: FDA-Public Use
  Company Number: US-CELGENEUS-163-21880-09011593

PATIENT
  Sex: Female

DRUGS (2)
  1. REVLIMID [Suspect]
     Route: 048
     Dates: start: 20090112
  2. REVLIMID [Suspect]
     Route: 048
     Dates: start: 20081222, end: 20090101

REACTIONS (3)
  - ANAEMIA [None]
  - DEATH [None]
  - EPISTAXIS [None]
